FAERS Safety Report 15932563 (Version 1)
Quarter: 2019Q1

REPORT INFORMATION
  Report Type: Spontaneous
  Country: GB (occurrence: GB)
  Receive Date: 20190207
  Receipt Date: 20190207
  Transmission Date: 20190417
  Serious: Yes (Other)
  Sender: FDA-Public Use
  Company Number: PHHY2019GB026963

PATIENT
  Age: 68 Year
  Sex: Female
  Weight: 77 kg

DRUGS (13)
  1. CARBAGEN [Concomitant]
     Active Substance: CARBAMAZEPINE
     Indication: TRIGEMINAL NEURALGIA
     Dosage: 2 DF, QD
     Route: 065
     Dates: start: 20180919
  2. BISOPROLOL [Concomitant]
     Active Substance: BISOPROLOL
     Indication: CARDIOVASCULAR EVENT PROPHYLAXIS
     Dosage: 1 DF, QD (TAKE ONE EACH DAY FOR THE HEART/BLOOD PRESSURE)
     Route: 065
     Dates: start: 20180919
  3. COLECALCIFEROL [Concomitant]
     Active Substance: CHOLECALCIFEROL
     Indication: PRODUCT USED FOR UNKNOWN INDICATION
     Dosage: 2 DF, QD
     Route: 065
     Dates: start: 20180919
  4. COLESTYRAMINE [Concomitant]
     Active Substance: CHOLESTYRAMINE
     Indication: PRODUCT USED FOR UNKNOWN INDICATION
     Dosage: 1 DF, QD (GRADUALLY INCREASING UP TO 4 DAILY.)
     Route: 065
     Dates: start: 20180919, end: 20181025
  5. PARACETAMOL [Concomitant]
     Active Substance: ACETAMINOPHEN
     Indication: PRODUCT USED FOR UNKNOWN INDICATION
     Dosage: 2 DF, UNK (2 UP TO 4 TIMES A DAY.)
     Route: 065
     Dates: start: 20180919, end: 20190116
  6. RANITIDINE. [Concomitant]
     Active Substance: RANITIDINE
     Indication: DYSPEPSIA
     Dosage: 2 DF, QD
     Route: 065
     Dates: start: 20180919
  7. SERTRALINE [Concomitant]
     Active Substance: SERTRALINE HYDROCHLORIDE
     Indication: AFFECTIVE DISORDER
     Dosage: TAKE ONE TO TWO DAILY.
     Route: 065
     Dates: start: 20180919, end: 20190116
  8. TEGRETOL [Concomitant]
     Active Substance: CARBAMAZEPINE
     Indication: TRIGEMINAL NEURALGIA
     Dosage: 2 DF, QD
     Route: 065
     Dates: start: 20181228
  9. CODEINE PHOSPHATE [Concomitant]
     Active Substance: CODEINE PHOSPHATE
     Indication: PRODUCT USED FOR UNKNOWN INDICATION
     Dosage: 1 DF, UNK (TAKE ONE UP TO 4 TIMES A DAY.)
     Dates: start: 20180919
  10. AMITRIPTYLINE HYDROCHLORIDE. [Concomitant]
     Active Substance: AMITRIPTYLINE HYDROCHLORIDE
     Indication: PRODUCT USED FOR UNKNOWN INDICATION
     Dosage: USE AS DIRECTED
     Route: 065
     Dates: start: 20190116, end: 20190118
  11. GABAPENTIN. [Suspect]
     Active Substance: GABAPENTIN
     Indication: PAIN
     Dosage: 900 MG, QD
     Route: 065
     Dates: start: 20180919
  12. RAMIPRIL. [Concomitant]
     Active Substance: RAMIPRIL
     Indication: HYPERTENSION
     Dosage: 1 DF, QD
     Route: 065
     Dates: start: 20180919, end: 20190116
  13. BECLOMETASONE [Concomitant]
     Active Substance: BECLOMETHASONE DIPROPIONATE
     Indication: PRODUCT USED FOR UNKNOWN INDICATION
     Dosage: USE ONE TO TWO PUFFS IN EACH NOSTRIL ONCE A DAY.
     Route: 045

REACTIONS (2)
  - Leukopenia [Unknown]
  - Neutropenia [Not Recovered/Not Resolved]
